FAERS Safety Report 20935836 (Version 1)
Quarter: 2022Q2

REPORT INFORMATION
  Report Type: Spontaneous
  Country: US (occurrence: US)
  Receive Date: 20220609
  Receipt Date: 20220609
  Transmission Date: 20220721
  Serious: No
  Sender: FDA-Public Use
  Company Number: US-UNITED THERAPEUTICS-UNT-2022-012070

PATIENT
  Sex: Female

DRUGS (2)
  1. REMODULIN [Suspect]
     Active Substance: TREPROSTINIL
     Indication: Pulmonary arterial hypertension
     Dosage: UNK, CONTINUING
     Route: 041
     Dates: start: 20190501
  2. REMODULIN [Suspect]
     Active Substance: TREPROSTINIL
     Dosage: 0.138 ?G/KG, CONTINUING (44ML/24HR)
     Route: 041

REACTIONS (4)
  - Malaise [Unknown]
  - Device issue [Recovered/Resolved]
  - Accidental overdose [Unknown]
  - Blood pressure decreased [Recovered/Resolved]
